FAERS Safety Report 8431470 (Version 13)
Quarter: 2015Q1

REPORT INFORMATION
  Report Type: Report from Study
  Country: IL (occurrence: IL)
  Receive Date: 20120228
  Receipt Date: 20150117
  Transmission Date: 20150721
  Serious: Yes (Disabling)
  Sender: FDA-Public Use
  Company Number: IL-ROCHE-1043435

PATIENT
  Age: 60 Year
  Sex: Female
  Weight: 51.5 kg

DRUGS (6)
  1. SIMVASTATIN. [Concomitant]
     Active Substance: SIMVASTATIN
     Route: 065
     Dates: start: 20120105
  2. FEXOFENADINE [Concomitant]
     Active Substance: FEXOFENADINE\FEXOFENADINE HYDROCHLORIDE
  3. PAMIDRONATE DISODIUM. [Suspect]
     Active Substance: PAMIDRONATE DISODIUM
     Indication: BONE PAIN
     Route: 065
     Dates: start: 20110303
  4. VEMURAFENIB [Suspect]
     Active Substance: VEMURAFENIB
     Indication: METASTATIC MALIGNANT MELANOMA
     Dosage: LAST DOSE PRIOR TO SAE 04/JUL/2011
     Route: 048
     Dates: start: 20110623, end: 20110704
  5. VEMURAFENIB [Suspect]
     Active Substance: VEMURAFENIB
     Dosage: DOSE DCREASED
     Route: 048
     Dates: start: 20110711, end: 20120130
  6. OMEPRADEX [Concomitant]
     Active Substance: OMEPRAZOLE
     Route: 065
     Dates: start: 20110704

REACTIONS (1)
  - Glomerulonephritis minimal lesion [Recovering/Resolving]

NARRATIVE: CASE EVENT DATE: 20120130
